FAERS Safety Report 19081071 (Version 1)
Quarter: 2021Q1

REPORT INFORMATION
  Report Type: Spontaneous
  Country: FR (occurrence: FR)
  Receive Date: 20210331
  Receipt Date: 20210331
  Transmission Date: 20210420
  Serious: Yes (Other)
  Sender: FDA-Public Use
  Company Number: FR-LUNDBECK-DKLU3030864

PATIENT
  Age: 37 Year
  Sex: Female

DRUGS (5)
  1. URBANYL [Suspect]
     Active Substance: CLOBAZAM
     Indication: ANXIETY
     Route: 048
     Dates: start: 20210217
  2. NOZINAN [Suspect]
     Active Substance: LEVOMEPROMAZINE
     Indication: ANXIETY
     Route: 048
     Dates: start: 20210217
  3. MICROPAKINE [Suspect]
     Active Substance: VALPROATE SODIUM
     Indication: EPILEPSY
     Route: 048
     Dates: start: 20210217
  4. EPITOMAX [Suspect]
     Active Substance: TOPIRAMATE
     Indication: EPILEPSY
     Route: 048
     Dates: start: 20210217
  5. TRILEPTAL [Suspect]
     Active Substance: OXCARBAZEPINE
     Indication: EPILEPSY
     Route: 048
     Dates: start: 20210217

REACTIONS (3)
  - Medication error [Unknown]
  - Epilepsy [Recovered/Resolved]
  - Product dose omission in error [Unknown]

NARRATIVE: CASE EVENT DATE: 20210217
